FAERS Safety Report 25329244 (Version 1)
Quarter: 2025Q2

REPORT INFORMATION
  Report Type: Report from Study
  Country: KR (occurrence: KR)
  Receive Date: 20250519
  Receipt Date: 20250519
  Transmission Date: 20250716
  Serious: Yes (Hospitalization)
  Sender: SUNOVION
  Company Number: KR-BIAL-BIAL-18424

PATIENT

DRUGS (27)
  1. ESLICARBAZEPINE ACETATE [Suspect]
     Active Substance: ESLICARBAZEPINE ACETATE
     Indication: Epilepsy
     Dosage: 400 MILLIGRAM, QD
     Route: 048
     Dates: start: 20241024, end: 20250117
  2. ESLICARBAZEPINE ACETATE [Suspect]
     Active Substance: ESLICARBAZEPINE ACETATE
     Dosage: 800 MILLIGRAM, QD
     Route: 048
     Dates: start: 20250120, end: 20250121
  3. ESLICARBAZEPINE ACETATE [Suspect]
     Active Substance: ESLICARBAZEPINE ACETATE
     Dosage: 1200 MILLIGRAM, QD
     Route: 048
     Dates: start: 20250122
  4. Epilatam [Concomitant]
     Indication: Epilepsy
     Dosage: 1 DOSAGE FORM, BID
     Route: 048
     Dates: start: 20120329
  5. Epilatam [Concomitant]
     Indication: Partial seizures
     Dosage: 1 DOSAGE FORM, BID
     Route: 048
     Dates: start: 20100916
  6. Epilatam [Concomitant]
     Dosage: 1500 MILLIGRAM, QD
     Route: 042
     Dates: start: 20250118, end: 20250121
  7. LYRICA [Concomitant]
     Active Substance: PREGABALIN
     Indication: Epilepsy
     Dosage: 1 DOSAGE FORM, BID
     Route: 048
     Dates: start: 20130627
  8. FYCOMPA [Concomitant]
     Active Substance: PERAMPANEL
     Indication: Epilepsy
     Dosage: 1 DOSAGE FORM, QD
     Route: 048
     Dates: start: 20161110
  9. DEPAKOTE ER [Concomitant]
     Active Substance: DIVALPROEX SODIUM
     Indication: Epilepsy
     Dosage: 1 DOSAGE FORM, BID
     Route: 048
     Dates: start: 20221201
  10. ASPIRIN [Concomitant]
     Active Substance: ASPIRIN
     Indication: Hypercholesterolaemia
     Dosage: 1 DOSAGE FORM, QD
     Route: 048
     Dates: start: 20100902
  11. LIPITOR [Concomitant]
     Active Substance: ATORVASTATIN CALCIUM
     Indication: Hypercholesterolaemia
     Dosage: 1 DOSAGE FORM, QD
     Route: 048
     Dates: start: 20160128
  12. Mucosta sr [Concomitant]
     Indication: Prophylaxis
     Dosage: 1 DOSAGE FORM, QD
     Route: 048
     Dates: start: 20181112
  13. URSODIOL [Concomitant]
     Active Substance: URSODIOL
     Indication: Liver function test increased
     Dosage: 1 DOSAGE FORM, BID
     Route: 048
     Dates: start: 20210430
  14. Traspen [Concomitant]
     Indication: Pain in extremity
     Dosage: 1 DOSAGE FORM, BID
     Route: 048
     Dates: start: 20240122
  15. CELEBREX [Concomitant]
     Active Substance: CELECOXIB
     Indication: Benign prostatic hyperplasia
     Dosage: 1 DOSAGE FORM, BID
     Route: 048
     Dates: start: 20220708
  16. CELEBREX [Concomitant]
     Active Substance: CELECOXIB
     Indication: Urinary tract obstruction
  17. LANSOPRAZOLE [Concomitant]
     Active Substance: LANSOPRAZOLE
     Indication: Gastrointestinal disorder prophylaxis
     Dosage: 1 DOSAGE FORM, QD
     Route: 048
     Dates: start: 20220902
  18. CHOLINE ALFOSCERATE [Concomitant]
     Active Substance: CHOLINE ALFOSCERATE
     Indication: Cognitive disorder
     Dosage: 1 DOSAGE FORM, BID
     Route: 048
     Dates: start: 20231120
  19. OMEGA-3 ACIDS [Concomitant]
     Active Substance: OMEGA-3 FATTY ACIDS
     Indication: Cognitive disorder
     Dosage: 1 DOSAGE FORM, BID
     Route: 048
     Dates: start: 20231120
  20. CEFTRIAXONE SODIUM [Concomitant]
     Active Substance: CEFTRIAXONE SODIUM
     Indication: Partial seizures
     Dosage: 1 DOSAGE FORM, QD
     Route: 042
     Dates: start: 20250117, end: 20250121
  21. Azitops [Concomitant]
     Indication: Partial seizures
     Dosage: 1 DOSAGE FORM, QD
     Route: 042
     Dates: start: 20250117, end: 20250121
  22. ATIVAN [Concomitant]
     Active Substance: LORAZEPAM
     Indication: Partial seizures
     Dosage: 1 DOSAGE FORM, QD
     Route: 042
     Dates: start: 20250117, end: 20250118
  23. Samjin Diazepam [Concomitant]
     Indication: Partial seizures
     Dosage: 1 DOSAGE FORM, QD
     Route: 042
     Dates: start: 20250117, end: 20250118
  24. IPRATROPIUM BROMIDE [Concomitant]
     Active Substance: IPRATROPIUM BROMIDE
     Indication: Partial seizures
     Dosage: 1 MILLILITER, BID
     Route: 045
     Dates: start: 20250118, end: 20250125
  25. VALPROATE SODIUM [Concomitant]
     Active Substance: VALPROATE SODIUM
     Indication: Partial seizures
     Dosage: 600 MILLIGRAM, BID
     Route: 042
     Dates: start: 20250118, end: 20250121
  26. LEVOFLOXACIN [Concomitant]
     Active Substance: LEVOFLOXACIN
     Indication: Pneumonia
     Dosage: 1 MILLIGRAM, QD
     Route: 042
     Dates: start: 20250120, end: 20250127
  27. Tazoperan [Concomitant]
     Indication: Pneumonia
     Dosage: 1 DOSAGE FORM, QD
     Route: 042
     Dates: start: 20250120, end: 20250127

REACTIONS (4)
  - Pneumonia [Recovered/Resolved]
  - Partial seizures [Recovered/Resolved]
  - Underdose [Recovered/Resolved]
  - Drug titration error [Recovered/Resolved]

NARRATIVE: CASE EVENT DATE: 20241024
